FAERS Safety Report 7969307-5 (Version None)
Quarter: 2011Q4

REPORT INFORMATION
  Report Type: 
  Country: None (occurrence: None)
  Receive Date: 20111209
  Receipt Date: 20111130
  Transmission Date: 20120403
  Serious: Yes (Hospitalization, Other)
  Sender: FDA-Public Use
  Company Number: US-ASTRAZENECA-2011SE37060

PATIENT
  Age: 49 Year
  Sex: Female

DRUGS (17)
  1. NEXIUM [Suspect]
     Indication: GASTROOESOPHAGEAL REFLUX DISEASE
     Dosage: TWO TIMES A DAY
     Route: 048
  2. MUPIROCIN [Concomitant]
     Route: 061
  3. EPINEPHRINE [Concomitant]
     Dosage: 0.3 MG/0.3
  4. NEXIUM [Suspect]
     Indication: HIATUS HERNIA
     Dosage: TWO TIMES A DAY
     Route: 048
  5. NEXIUM [Suspect]
     Indication: DYSKINESIA OESOPHAGEAL
     Dosage: TWO TIMES A DAY
     Route: 048
  6. AMITRIPTYLINE HCL [Concomitant]
  7. PROMETHAZINE [Concomitant]
  8. ALBUTEROL SULFATE [Concomitant]
     Dosage: INHALER
  9. ROLAIDS [Concomitant]
     Dosage: AS NEEDED
  10. CYCLOBENZAPRINE [Concomitant]
  11. AMITIZA [Concomitant]
  12. HYDROXYZINE [Concomitant]
  13. LORAZEPAM [Concomitant]
  14. HYDRALAZINE HCL [Concomitant]
  15. BENEFIBER [Concomitant]
     Dosage: ONCE A DAY
  16. WOMENS PROACTIVE VITAMIN [Concomitant]
     Dosage: ONE A DAY
  17. MIRALAX [Concomitant]
     Dosage: ONCE A DAY AND ONCE AT NIGHT

REACTIONS (24)
  - GASTROOESOPHAGEAL REFLUX DISEASE [None]
  - DEPRESSION [None]
  - HYPERHIDROSIS [None]
  - NAUSEA [None]
  - HYPERTENSION [None]
  - INFLAMMATORY BOWEL DISEASE [None]
  - NASOPHARYNGITIS [None]
  - DEHYDRATION [None]
  - THROMBOSIS [None]
  - HIATUS HERNIA [None]
  - NEURALGIA [None]
  - SLEEP DISORDER DUE TO GENERAL MEDICAL CONDITION, INSOMNIA TYPE [None]
  - HEPATITIS C [None]
  - DYSKINESIA OESOPHAGEAL [None]
  - MIGRAINE [None]
  - DYSPEPSIA [None]
  - DRUG DOSE OMISSION [None]
  - PAIN [None]
  - VOMITING [None]
  - DIVERTICULUM [None]
  - FUNGAL INFECTION [None]
  - ANXIETY [None]
  - MALAISE [None]
  - OFF LABEL USE [None]
